FAERS Safety Report 20542848 (Version 1)
Quarter: 2022Q1

REPORT INFORMATION
  Report Type: Spontaneous
  Country: KZ (occurrence: KZ)
  Receive Date: 20220302
  Receipt Date: 20220302
  Transmission Date: 20220423
  Serious: Yes (Other)
  Sender: FDA-Public Use
  Company Number: KZ-PFIZER INC-202200307151

PATIENT
  Sex: Male

DRUGS (1)
  1. LYRICA [Suspect]
     Active Substance: PREGABALIN
     Dosage: 75 MG, 3X/DAY

REACTIONS (4)
  - Depressed level of consciousness [Unknown]
  - Mental disorder [Unknown]
  - Delusion [Unknown]
  - Anxiety [Unknown]
